FAERS Safety Report 7434196-4 (Version None)
Quarter: 2011Q2

REPORT INFORMATION
  Report Type: 
  Country: None (occurrence: None)
  Receive Date: 20110425
  Receipt Date: 20110418
  Transmission Date: 20111010
  Serious: No
  Sender: FDA-Public Use
  Company Number: US-PFIZER INC-2011085359

PATIENT
  Sex: Male
  Weight: 118 kg

DRUGS (5)
  1. ADVIL COLD AND SINUS [Suspect]
     Indication: NASOPHARYNGITIS
  2. ADVIL COLD AND SINUS [Suspect]
     Indication: DYSPNOEA
  3. SIMVASTATIN [Concomitant]
     Indication: BLOOD CHOLESTEROL ABNORMAL
     Dosage: 80 MG, DAILY
     Route: 048
  4. ATENOLOL [Concomitant]
     Indication: HYPERTENSION
     Dosage: 50 MG, DAILY
     Route: 048
  5. ADVIL COLD AND SINUS [Suspect]
     Indication: OROPHARYNGEAL PAIN
     Dosage: UNK, DAILY
     Route: 048
     Dates: start: 20110418

REACTIONS (1)
  - EPISTAXIS [None]
